FAERS Safety Report 7829407-7 (Version None)
Quarter: 2011Q4

REPORT INFORMATION
  Report Type: 
  Country: None (occurrence: None)
  Receive Date: 20111020
  Receipt Date: 20111013
  Transmission Date: 20120403
  Serious: Yes (Other)
  Sender: FDA-Public Use
  Company Number: US-BAYER-2011-099224

PATIENT
  Sex: Female

DRUGS (2)
  1. ASPIRIN [Suspect]
  2. IBUPROFEN (ADVIL) [Suspect]

REACTIONS (3)
  - DYSPNOEA [None]
  - CEREBROVASCULAR ACCIDENT [None]
  - HEMIPLEGIA [None]
